FAERS Safety Report 6151592-6 (Version None)
Quarter: 2009Q2

REPORT INFORMATION
  Report Type: 
  Country: None (occurrence: None)
  Receive Date: 20090410
  Receipt Date: 20090331
  Transmission Date: 20091009
  Serious: Yes (Other)
  Sender: FDA-Public Use
  Company Number: US-PFIZER INC-2007068808

PATIENT
  Sex: Female

DRUGS (4)
  1. NEURONTIN [Suspect]
     Dates: end: 20070101
  2. GABAPENTIN [Suspect]
     Indication: NEURALGIA
     Dates: end: 20070101
  3. VOLTAREN [Suspect]
     Indication: OSTEOARTHRITIS
     Dates: end: 20060101
  4. WARFARIN [Concomitant]

REACTIONS (13)
  - ANGINA PECTORIS [None]
  - ATRIAL FIBRILLATION [None]
  - CONFUSIONAL STATE [None]
  - DROOLING [None]
  - DRUG INEFFECTIVE [None]
  - DRY MOUTH [None]
  - FALL [None]
  - HEART VALVE INCOMPETENCE [None]
  - JOINT INJURY [None]
  - MEMORY IMPAIRMENT [None]
  - NEURALGIA [None]
  - RENAL FAILURE [None]
  - ROTATOR CUFF REPAIR [None]
